FAERS Safety Report 8010298-9 (Version None)
Quarter: 2011Q4

REPORT INFORMATION
  Report Type: 
  Country: None (occurrence: None)
  Receive Date: 20111228
  Receipt Date: 20111219
  Transmission Date: 20120403
  Serious: Yes (Disabling, Other)
  Sender: FDA-Public Use
  Company Number: US-PFIZER INC-2011309199

PATIENT
  Age: 29 Year
  Sex: Female

DRUGS (2)
  1. HYDROMORPHONE HCL [Suspect]
     Indication: BREAKTHROUGH PAIN
     Dosage: 40 MG, DAILY
  2. MORPHINE SULFATE [Suspect]
     Indication: PAIN
     Dosage: 100 MG, 2X/DAY

REACTIONS (2)
  - DRUG TOLERANCE [None]
  - HYPERAESTHESIA [None]
